FAERS Safety Report 11995706 (Version 1)
Quarter: 2016Q1

REPORT INFORMATION
  Report Type: Spontaneous
  Country: US (occurrence: US)
  Receive Date: 20160203
  Receipt Date: 20160203
  Transmission Date: 20160526
  Serious: No
  Sender: FDA-Public Use
  Company Number: US-BAUSCH-BL-2015-001987

PATIENT
  Sex: Female

DRUGS (1)
  1. MIGRANAL [Suspect]
     Active Substance: DIHYDROERGOTAMINE MESYLATE
     Indication: MIGRAINE
     Route: 061

REACTIONS (4)
  - Throat tightness [Unknown]
  - Feeling abnormal [Unknown]
  - Dizziness [Unknown]
  - Erythema [Unknown]
